FAERS Safety Report 8737444 (Version 5)
Quarter: 2013Q3

REPORT INFORMATION
  Report Type: Report from Study
  Country: JP (occurrence: JP)
  Receive Date: 20120822
  Receipt Date: 20130918
  Transmission Date: 20140515
  Serious: Yes (Other)
  Sender: FDA-Public Use
  Company Number: JP-VERTEX PHARMACEUTICAL INC.-2012-019702

PATIENT
  Age: 57 Year
  Sex: Female

DRUGS (27)
  1. VX-950 (TELAPREVIR) [Suspect]
     Indication: CHRONIC HEPATITIS C
     Dosage: 2250 MG, QD
     Route: 048
     Dates: start: 20120619, end: 20120814
  2. VX-950 (TELAPREVIR) [Suspect]
     Dosage: 1500 MG, QD
     Route: 048
     Dates: start: 20120911, end: 20121019
  3. RIBAVIRIN [Suspect]
     Indication: CHRONIC HEPATITIS C
     Dosage: 600 MG, QD
     Route: 048
     Dates: start: 20120619, end: 20120716
  4. RIBAVIRIN [Suspect]
     Dosage: 400 MG, QD
     Route: 048
     Dates: start: 20120717, end: 20120723
  5. RIBAVIRIN [Suspect]
     Dosage: 200 MG, QD
     Route: 048
     Dates: start: 20120724, end: 20120807
  6. RIBAVIRIN [Suspect]
     Dosage: 100 MG, QD
     Route: 048
     Dates: start: 20120808, end: 20120814
  7. RIBAVIRIN [Suspect]
     Dosage: 200 MG, QD
     Route: 048
     Dates: start: 20120911, end: 20120917
  8. RIBAVIRIN [Suspect]
     Dosage: 100 MG, QD
     Route: 048
     Dates: start: 20120918, end: 20121126
  9. RIBAVIRIN [Suspect]
     Dosage: 200 MG, QD
     Route: 048
     Dates: start: 20121127, end: 20121231
  10. PEGINTERFERON ALFA-2B [Suspect]
     Indication: CHRONIC HEPATITIS C
     Dosage: 1.5 ?G/KG, QW
     Route: 058
     Dates: start: 20120619, end: 20120625
  11. PEGINTERFERON ALFA-2B [Suspect]
     Dosage: 0.8 ?G/KG, QW
     Route: 058
     Dates: start: 20120626, end: 20120709
  12. PEGINTERFERON ALFA-2B [Suspect]
     Dosage: 1 ?G/KG, QW
     Route: 058
     Dates: start: 20120710, end: 20120730
  13. PEGINTERFERON ALFA-2B [Suspect]
     Dosage: 1.25 ?G/KG, QW
     Route: 058
     Dates: start: 20120731, end: 20120731
  14. PEGINTERFERON ALFA-2B [Suspect]
     Dosage: 0.8 ?G/KG, QW
     Route: 058
     Dates: start: 20120807, end: 20120918
  15. PEGINTERFERON ALFA-2B [Suspect]
     Dosage: 1 ?G/KG, QW
     Route: 058
     Dates: start: 20120925, end: 20121121
  16. PEGINTERFERON ALFA-2B [Suspect]
     Dosage: 0.8 ?G/KG, QW
     Route: 058
     Dates: start: 20121127, end: 20121225
  17. TEGRETOL [Concomitant]
     Dosage: 400 MG, QD
     Route: 048
  18. VITADAN [Concomitant]
     Dosage: 4 DF, QD
     Route: 048
  19. HORIZON [Concomitant]
     Dosage: 2 MG/ DAY, PRN
     Route: 048
  20. CERCINE [Concomitant]
     Dosage: 2 MG/ DAY, PRN
     Route: 048
  21. CERCINE [Concomitant]
     Dosage: 2 MG, QD
     Route: 048
  22. SELBEX [Concomitant]
     Dosage: 50 MG/ DAY, PRN
     Route: 048
     Dates: start: 20120620
  23. SELBEX [Concomitant]
     Dosage: 50 MG, QD
     Route: 048
  24. SELBEX [Concomitant]
     Dosage: 50MG/ DAY, PRN
     Route: 048
  25. METHYCOBAL [Concomitant]
     Dosage: 1000 MG, QD
     Route: 048
  26. LOXOPROFEN [Concomitant]
     Dosage: 60 MG/ DAY, PRN
     Route: 048
  27. TOPINA [Concomitant]
     Dosage: 100 MG, QD
     Route: 048

REACTIONS (2)
  - White blood cell count decreased [Recovered/Resolved]
  - Neutrophil count decreased [Recovered/Resolved]
